FAERS Safety Report 5703253-2 (Version None)
Quarter: 2008Q2

REPORT INFORMATION
  Report Type: 
  Country: None (occurrence: None)
  Receive Date: 20080411
  Receipt Date: 20080326
  Transmission Date: 20081010
  Serious: Yes (Congenital Anomaly)
  Sender: FDA-Public Use
  Company Number: CH-BAYER-200815964GPV

PATIENT
  Sex: Female
  Weight: 3.82 kg

DRUGS (1)
  1. MIRENA [Suspect]
     Indication: DRUG USE FOR UNKNOWN INDICATION
     Route: 064
     Dates: start: 20060522

REACTIONS (1)
  - NASAL SEPTUM DEVIATION [None]
